FAERS Safety Report 8054356-1 (Version None)
Quarter: 2012Q1

REPORT INFORMATION
  Report Type: 
  Country: None (occurrence: None)
  Receive Date: 20120118
  Receipt Date: 20120113
  Transmission Date: 20120608
  Serious: Yes (Death, Hospitalization)
  Sender: FDA-Public Use
  Company Number: PHHY2010JP48628

PATIENT
  Sex: Male
  Weight: 50 kg

DRUGS (22)
  1. NEORAL [Suspect]
     Dosage: 100 MG, UNK
     Route: 048
     Dates: start: 20090224, end: 20090327
  2. NEORAL [Suspect]
     Dosage: 150 MG,UNK
     Route: 048
     Dates: start: 20090530, end: 20090612
  3. NEORAL [Suspect]
     Dosage: 100 MG, UNK
     Route: 048
     Dates: start: 20090904, end: 20091224
  4. ALBUMIN TANNATE [Concomitant]
     Dosage: 1.2 G, UNK
     Route: 048
     Dates: start: 20090222, end: 20090227
  5. SCOPOLIA CARNICALA [Concomitant]
     Dosage: 0.2 G, UNK
     Route: 048
     Dates: start: 20090222, end: 20090227
  6. ATRAXIN [Concomitant]
     Indication: DERMATITIS ATOPIC
     Dosage: 25 MG, UNK
     Route: 048
     Dates: start: 19950830
  7. ALENDRONATE SODIUM [Concomitant]
     Route: 048
     Dates: start: 20060606
  8. NEORAL [Suspect]
     Dosage: 125 MG UNK
     Route: 048
     Dates: start: 20090328, end: 20090508
  9. NITRAZEPAM [Concomitant]
     Dosage: 5 MG, UNK
     Route: 048
     Dates: start: 20030118
  10. PREDNISOLONE [Concomitant]
     Indication: DERMATITIS ATOPIC
     Dosage: 10 MG, UNK
     Route: 048
     Dates: start: 19990914
  11. NEORAL [Suspect]
     Dosage: 150 MG, UNK
     Route: 048
     Dates: start: 20090509, end: 20090516
  12. NEORAL [Suspect]
     Dosage: 150 MG, UNK
     Route: 048
     Dates: end: 20110909
  13. ANTEBATE [Concomitant]
     Indication: DERMATITIS ATOPIC
     Route: 061
     Dates: start: 20080430
  14. BIFIDOBACTERIUM BIFIDUM [Concomitant]
     Dosage: 1 G, UNK
     Route: 048
     Dates: start: 20090222, end: 20090227
  15. TALION [Concomitant]
     Indication: DERMATITIS ATOPIC
     Dosage: 20 MG, UNK
     Route: 048
     Dates: start: 20030104
  16. NEORAL [Suspect]
     Dosage: 75 MG, UNK
     Route: 048
     Dates: start: 20090613, end: 20090730
  17. TACROLIMUS [Concomitant]
     Indication: DERMATITIS ATOPIC
     Route: 061
     Dates: start: 20070608
  18. NEORAL [Suspect]
     Indication: DERMATITIS ATOPIC
     Dosage: 150 MG, UNK
     Route: 048
     Dates: start: 20090221, end: 20090222
  19. NEORAL [Suspect]
     Dosage: 150 MG, UNK
     Route: 048
     Dates: start: 20091225, end: 20100219
  20. MYSER [Concomitant]
     Indication: DERMATITIS ATOPIC
     Route: 061
     Dates: start: 20070608
  21. NEORAL [Suspect]
     Dosage: 100 MG, UNK
     Route: 048
     Dates: start: 20090731, end: 20090822
  22. ONEALFA [Concomitant]
     Dosage: 1 UG, UNK
     Route: 048
     Dates: start: 19941228

REACTIONS (5)
  - IMMUNOSUPPRESSANT DRUG LEVEL DECREASED [None]
  - DEPRESSED LEVEL OF CONSCIOUSNESS [None]
  - SEPSIS [None]
  - SEPTIC SHOCK [None]
  - NAUSEA [None]
